FAERS Safety Report 4983724-7 (Version None)
Quarter: 2006Q1

REPORT INFORMATION
  Report Type: 
  Country: None (occurrence: None)
  Receive Date: 20060301
  Receipt Date: 20060106
  Transmission Date: 20060701
  Serious: No
  Sender: FDA-Public Use
  Company Number: S06-USA-00150-01

PATIENT
  Age: 79 Year
  Sex: Female

DRUGS (12)
  1. NAMENDA [Suspect]
     Indication: DEMENTIA ALZHEIMER'S TYPE
     Dosage: 10 MG BID PO
     Route: 048
  2. NAMENDA [Suspect]
     Indication: DEMENTIA ALZHEIMER'S TYPE
     Dosage: 5 MG QD PO
     Route: 048
  3. NAMENDA [Suspect]
     Indication: DEMENTIA ALZHEIMER'S TYPE
     Dosage: 5 MG BID PO
     Route: 048
  4. NAMENDA [Suspect]
     Indication: DEMENTIA ALZHEIMER'S TYPE
     Dosage: 15 MG QD PO
     Route: 048
  5. ARICFEPT (DONEPEZIL HYDROCHLORIDE) [Concomitant]
  6. SYNTHROID [Concomitant]
  7. CALCIUM (CALCIUM) [Concomitant]
  8. COENZYME Q10 [Concomitant]
  9. FOLIC ACID [Concomitant]
  10. VITAMIN B6 (VITAMIN B6) [Concomitant]
  11. VITAMIN B12 [Concomitant]
  12. FISH OIL (FISH OIL) [Concomitant]

REACTIONS (2)
  - CONFUSIONAL STATE [None]
  - SPEECH DISORDER [None]
